FAERS Safety Report 13898321 (Version 1)
Quarter: 2017Q3

REPORT INFORMATION
  Report Type: Spontaneous
  Country: US (occurrence: None)
  Receive Date: 20170818
  Receipt Date: 20170818
  Transmission Date: 20171127
  Serious: Yes (Hospitalization)
  Sender: FDA-Public Use
  Company Number: None

PATIENT
  Sex: Female
  Weight: 68.22 kg

DRUGS (1)
  1. TEMOZOLOMIDE. [Suspect]
     Active Substance: TEMOZOLOMIDE
     Dates: end: 20160517

REACTIONS (2)
  - Platelet count decreased [None]
  - Disease progression [None]

NARRATIVE: CASE EVENT DATE: 20170123
